FAERS Safety Report 8538794-6 (Version None)
Quarter: 2012Q3

REPORT INFORMATION
  Report Type: 
  Country: None (occurrence: None)
  Receive Date: 20120713
  Receipt Date: 20120621
  Transmission Date: 20120928
  Serious: Yes (Other)
  Sender: FDA-Public Use
  Company Number: 2280705-2012-00077

PATIENT
  Sex: Male

DRUGS (2)
  1. ORAJEL MAXIMUM STRENGTH ORAL PAIN RELIEVER BENZOCAINE 20%, MENTHOL 0.2 [Suspect]
     Indication: TOOTHACHE
     Dosage: ORAL APPLICATION
     Route: 048
     Dates: start: 20120615
  2. NAPROXEN [Concomitant]

REACTIONS (3)
  - PRURITUS [None]
  - ERYTHEMA [None]
  - DYSPNOEA [None]
